FAERS Safety Report 9577971 (Version 1)
Quarter: 2013Q4

REPORT INFORMATION
  Report Type: Spontaneous
  Country: US (occurrence: US)
  Receive Date: 20131001
  Receipt Date: 20131001
  Transmission Date: 20140711
  Serious: No
  Sender: FDA-Public Use
  Company Number: US-AMGEN-USASP2013010509

PATIENT
  Age: 31 Year
  Sex: Female
  Weight: 61.22 kg

DRUGS (5)
  1. ENBREL [Suspect]
     Indication: ANKYLOSING SPONDYLITIS
     Dosage: 50 MG, QWK
     Route: 058
  2. AMBIEN [Concomitant]
     Dosage: 10 MG, UNK
  3. EFFEXOR XR [Concomitant]
     Dosage: 150 MG, UNK
  4. SPRINTEC [Concomitant]
     Dosage: UNK, 28 TAB 28 DAYS
  5. LORTAB                             /00607101/ [Concomitant]
     Dosage: UNK, 5 TAB

REACTIONS (2)
  - Injection site warmth [Unknown]
  - Injection site discolouration [Unknown]
